FAERS Safety Report 6100109-0 (Version None)
Quarter: 2009Q1

REPORT INFORMATION
  Report Type: 
  Country: None (occurrence: None)
  Receive Date: 20090303
  Receipt Date: 20090223
  Transmission Date: 20090719
  Serious: Yes (Other)
  Sender: FDA-Public Use
  Company Number: AU-AVENTIS-200910935EU

PATIENT
  Age: 41 Year
  Sex: Male

DRUGS (2)
  1. CLEXANE [Suspect]
     Indication: DEEP VEIN THROMBOSIS
     Dosage: DOSE: UNK
     Route: 058
     Dates: start: 20090129, end: 20090208
  2. WARFARIN SODIUM [Suspect]
     Indication: DEEP VEIN THROMBOSIS
     Dosage: DOSE: UNK
     Route: 048
     Dates: start: 20090130

REACTIONS (1)
  - HEPATIC ENZYME INCREASED [None]
